FAERS Safety Report 5371583-2 (Version None)
Quarter: 2007Q2

REPORT INFORMATION
  Report Type: 
  Country: None (occurrence: None)
  Receive Date: 20070625
  Receipt Date: 20070612
  Transmission Date: 20071010
  Serious: Yes (Other)
  Sender: FDA-Public Use
  Company Number: SPV1-2007-03307

PATIENT
  Age: 32 Year
  Sex: Male

DRUGS (2)
  1. CARBATROL [Suspect]
     Indication: NEURALGIA
     Dosage: SEE IMAGE
  2. CARBATROL [Suspect]
     Indication: NEURALGIA
     Dosage: SEE IMAGE

REACTIONS (1)
  - CENTRAL NERVOUS SYSTEM LESION [None]
